FAERS Safety Report 21176358 (Version 2)
Quarter: 2022Q3

REPORT INFORMATION
  Report Type: Spontaneous
  Country: AR (occurrence: AR)
  Receive Date: 20220805
  Receipt Date: 20220830
  Transmission Date: 20221027
  Serious: Yes (Hospitalization, Other)
  Sender: FDA-Public Use
  Company Number: AR-PINT-2022-Neratinib-092

PATIENT

DRUGS (6)
  1. NERLYNX [Suspect]
     Active Substance: NERATINIB
     Indication: HER2 positive breast cancer
     Dosage: FOR THE FIRST WEEK
     Route: 048
     Dates: start: 20220531, end: 202206
  2. NERLYNX [Suspect]
     Active Substance: NERATINIB
     Dosage: FOR THE SECOND WEEK
     Route: 048
     Dates: start: 202206, end: 202206
  3. NERLYNX [Suspect]
     Active Substance: NERATINIB
     Dosage: FROM THE THIRD WEEK ON
     Route: 048
     Dates: start: 202206
  4. LOPERAMIDE [Concomitant]
     Active Substance: LOPERAMIDE
     Indication: Product used for unknown indication
     Dosage: AS NEEDED ()
  5. TAMOXIFEN [Concomitant]
     Active Substance: TAMOXIFEN
     Indication: Product used for unknown indication
     Dosage: UNK
  6. Goroselin [Concomitant]
     Indication: Product used for unknown indication
     Dosage: UNK

REACTIONS (4)
  - Diarrhoea [Not Recovered/Not Resolved]
  - Off label use [Recovered/Resolved]
  - Skin fissures [Unknown]
  - Cellulitis [Recovered/Resolved]

NARRATIVE: CASE EVENT DATE: 20220101
